FAERS Safety Report 23960536 (Version 1)
Quarter: 2024Q2

REPORT INFORMATION
  Report Type: Report from Study
  Country: US (occurrence: None)
  Receive Date: 20240611
  Receipt Date: 20240611
  Transmission Date: 20240716
  Serious: Yes (Hospitalization, Other)
  Sender: FDA-Public Use
  Company Number: 2024A129354

PATIENT
  Sex: Female

DRUGS (1)
  1. LYNPARZA [Suspect]
     Active Substance: OLAPARIB
     Indication: Ovarian cancer
     Route: 048
     Dates: start: 20240304

REACTIONS (6)
  - Cataract [Unknown]
  - Haemoglobin decreased [Unknown]
  - Hip fracture [Unknown]
  - Fatigue [Unknown]
  - Abdominal pain [Unknown]
  - Dyspepsia [Unknown]
